FAERS Safety Report 11190757 (Version 2)
Quarter: 2015Q2

REPORT INFORMATION
  Report Type: Report from Study
  Country: BE (occurrence: BE)
  Receive Date: 20150615
  Receipt Date: 20150624
  Transmission Date: 20150821
  Serious: Yes (Hospitalization)
  Sender: FDA-Public Use
  Company Number: BE-ABBVIE-15P-013-1406422-00

PATIENT
  Sex: Male

DRUGS (5)
  1. LEVODOPA/CARBIDOPA [Suspect]
     Active Substance: CARBIDOPA\LEVODOPA
     Dosage: AM: 10ML; CD:4.4ML/H FOR 16HRS; ED:3.5ML
     Route: 050
     Dates: start: 20150618
  2. LEVODOPA/CARBIDOPA [Suspect]
     Active Substance: CARBIDOPA\LEVODOPA
     Dosage: DOSE CONTINUOUSLY MONITORED AND ADAPTED
     Route: 050
     Dates: start: 20150402, end: 20150529
  3. LEVODOPA/CARBIDOPA [Suspect]
     Active Substance: CARBIDOPA\LEVODOPA
     Dosage: AM = 10 ML, CD = 4.4 ML/H 16H, ED = 3 ML
     Route: 050
     Dates: start: 20150529, end: 20150618
  4. LEVODOPA/CARBIDOPA [Suspect]
     Active Substance: CARBIDOPA\LEVODOPA
     Indication: PARKINSON^S DISEASE
     Dosage: AM = 5 ML, CD = 3.2 ML/H 16H, ED = 1.5 ML
     Route: 050
     Dates: start: 20150330, end: 20150402
  5. PROLOPA HBS [Concomitant]
     Indication: PARKINSON^S DISEASE
     Dosage: 100MG/25MG; UNIT DOSE: 2 CAPSULES:AT NIGHT WHEN NEEDED

REACTIONS (2)
  - General physical health deterioration [Unknown]
  - Anaemia [Unknown]
